FAERS Safety Report 4646604-2 (Version None)
Quarter: 2005Q2

REPORT INFORMATION
  Report Type: 
  Country: None (occurrence: None)
  Receive Date: 20050427
  Receipt Date: 20050126
  Transmission Date: 20051028
  Serious: No
  Sender: FDA-Public Use
  Company Number: US-GLAXOSMITHKLINE-A0542474A

PATIENT
  Age: 72 Year
  Sex: Male

DRUGS (5)
  1. FLOVENT [Suspect]
     Dosage: 2PUFF TWICE PER DAY
     Route: 055
  2. LASIX [Concomitant]
  3. POTASSIUM CHLORIDE [Concomitant]
  4. AUGMENTIN [Concomitant]
  5. CARDIZEM [Concomitant]

REACTIONS (4)
  - DIZZINESS [None]
  - FATIGUE [None]
  - HEADACHE [None]
  - NAUSEA [None]
